FAERS Safety Report 24922736 (Version 1)
Quarter: 2025Q1

REPORT INFORMATION
  Report Type: Spontaneous
  Country: CA (occurrence: CA)
  Receive Date: 20250204
  Receipt Date: 20250204
  Transmission Date: 20250409
  Serious: Yes (Hospitalization, Other)
  Sender: NORDIC PHARMA
  Company Number: CA-NORDICGR-058738

PATIENT
  Age: 69 Year
  Sex: Male
  Weight: 76 kg

DRUGS (18)
  1. METHOTREXATE [Suspect]
     Active Substance: METHOTREXATE
     Indication: Arthralgia
     Route: 065
  2. TYLENOL [Concomitant]
     Active Substance: ACETAMINOPHEN
     Indication: Pain
     Route: 065
  3. ACTEMRA [Concomitant]
     Active Substance: TOCILIZUMAB
     Indication: Rheumatoid arthritis
     Route: 042
  4. ACTEMRA [Concomitant]
     Active Substance: TOCILIZUMAB
     Indication: Rheumatoid arthritis
     Route: 042
  5. ACTEMRA [Concomitant]
     Active Substance: TOCILIZUMAB
     Indication: Rheumatoid arthritis
     Route: 042
  6. ACTEMRA [Concomitant]
     Active Substance: TOCILIZUMAB
     Indication: Rheumatoid arthritis
     Route: 042
  7. ACTEMRA [Concomitant]
     Active Substance: TOCILIZUMAB
     Indication: Rheumatoid arthritis
     Route: 042
  8. ACTEMRA [Concomitant]
     Active Substance: TOCILIZUMAB
     Indication: Rheumatoid arthritis
     Route: 042
  9. ACTEMRA [Concomitant]
     Active Substance: TOCILIZUMAB
     Indication: Rheumatoid arthritis
     Route: 042
  10. ACTEMRA [Concomitant]
     Active Substance: TOCILIZUMAB
     Indication: Rheumatoid arthritis
     Route: 042
  11. ACTEMRA [Concomitant]
     Active Substance: TOCILIZUMAB
     Indication: Rheumatoid arthritis
     Route: 042
  12. ACTEMRA [Concomitant]
     Active Substance: TOCILIZUMAB
     Indication: Rheumatoid arthritis
     Route: 042
  13. CELEBREX [Concomitant]
     Active Substance: CELECOXIB
     Indication: Product used for unknown indication
     Route: 065
  14. ACETAMINOPHEN [Concomitant]
     Active Substance: ACETAMINOPHEN
     Indication: Pain
     Route: 065
  15. PNEUMOCOCCAL VACCINE POLYVALENT NOS [Concomitant]
     Active Substance: PNEUMOCOCCAL VACCINE, POLYVALENT
     Indication: Immunisation
     Route: 065
  16. FOLIC ACID [Concomitant]
     Active Substance: FOLIC ACID
     Indication: Product used for unknown indication
     Route: 065
  17. METHOTREXATE [Concomitant]
     Active Substance: METHOTREXATE
     Indication: Arthralgia
     Route: 065
  18. METHOTREXATE [Concomitant]
     Active Substance: METHOTREXATE
     Indication: Arthralgia
     Route: 065

REACTIONS (54)
  - Anaemia [Not Recovered/Not Resolved]
  - Skin discolouration [Not Recovered/Not Resolved]
  - Weight increased [Not Recovered/Not Resolved]
  - Drug ineffective [Not Recovered/Not Resolved]
  - Dry eye [Unknown]
  - Insomnia [Not Recovered/Not Resolved]
  - Hypoaesthesia [Unknown]
  - Blood pressure systolic abnormal [Not Recovered/Not Resolved]
  - Blood pressure systolic increased [Not Recovered/Not Resolved]
  - Osteoarthritis [Not Recovered/Not Resolved]
  - Micturition disorder [Unknown]
  - Peripheral swelling [Unknown]
  - Dysuria [Unknown]
  - Neck pain [Unknown]
  - Drug ineffective [Unknown]
  - Mass [Not Recovered/Not Resolved]
  - Nerve compression [Not Recovered/Not Resolved]
  - Pain [Unknown]
  - Pruritus [Not Recovered/Not Resolved]
  - Rash [Unknown]
  - Musculoskeletal stiffness [Not Recovered/Not Resolved]
  - Ligament rupture [Not Recovered/Not Resolved]
  - Weight decreased [Not Recovered/Not Resolved]
  - Nasal disorder [Not Recovered/Not Resolved]
  - Arthralgia [Not Recovered/Not Resolved]
  - Mouth ulceration [Unknown]
  - Pain in extremity [Not Recovered/Not Resolved]
  - Joint range of motion decreased [Not Recovered/Not Resolved]
  - Musculoskeletal stiffness [Unknown]
  - Blood pressure diastolic decreased [Not Recovered/Not Resolved]
  - Infusion related reaction [Not Recovered/Not Resolved]
  - Gingival ulceration [Not Recovered/Not Resolved]
  - Skin abrasion [Not Recovered/Not Resolved]
  - Skin papilloma [Unknown]
  - Blood pressure decreased [Not Recovered/Not Resolved]
  - Blood pressure increased [Not Recovered/Not Resolved]
  - Condition aggravated [Unknown]
  - Body temperature decreased [Not Recovered/Not Resolved]
  - Paraesthesia [Unknown]
  - Oedema peripheral [Not Recovered/Not Resolved]
  - Micturition disorder [Not Recovered/Not Resolved]
  - Inflammation [Unknown]
  - Thermal burn [Not Recovered/Not Resolved]
  - Rib fracture [Not Recovered/Not Resolved]
  - Heart rate decreased [Not Recovered/Not Resolved]
  - Blood pressure fluctuation [Not Recovered/Not Resolved]
  - Arthralgia [Not Recovered/Not Resolved]
  - Fall [Not Recovered/Not Resolved]
  - Oxygen saturation decreased [Not Recovered/Not Resolved]
  - Blood pressure diastolic abnormal [Unknown]
  - Dry skin [Unknown]
  - Cystitis bacterial [Unknown]
  - Back pain [Not Recovered/Not Resolved]
  - Dry throat [Unknown]
